FAERS Safety Report 17118648 (Version 1)
Quarter: 2019Q4

REPORT INFORMATION
  Report Type: Spontaneous
  Country: DK (occurrence: DK)
  Receive Date: 20191206
  Receipt Date: 20191206
  Transmission Date: 20200122
  Serious: Yes (Hospitalization, Other)
  Sender: FDA-Public Use
  Company Number: DK-ASTRAZENECA-2019SF71145

PATIENT
  Age: 71 Year
  Sex: Female

DRUGS (3)
  1. FULVESTRANT. [Suspect]
     Active Substance: FULVESTRANT
     Indication: BREAST CANCER METASTATIC
     Dosage: 500 MG ON DAY ONE AND 14
     Route: 030
  2. PALBOCICLIB [Suspect]
     Active Substance: PALBOCICLIB
     Indication: BREAST CANCER METASTATIC
     Route: 048
  3. SIMVASTATIN. [Suspect]
     Active Substance: SIMVASTATIN
     Route: 065

REACTIONS (1)
  - Rhabdomyolysis [Recovered/Resolved]
